FAERS Safety Report 25242736 (Version 1)
Quarter: 2025Q2

REPORT INFORMATION
  Report Type: Spontaneous
  Country: CN (occurrence: CN)
  Receive Date: 20250427
  Receipt Date: 20250427
  Transmission Date: 20250716
  Serious: Yes (Hospitalization)
  Sender: BEIGENE
  Company Number: CN-BEIGENE-BGN-2025-006294

PATIENT
  Age: 76 Year

DRUGS (2)
  1. TISLELIZUMAB [Suspect]
     Active Substance: TISLELIZUMAB
     Indication: Bladder cancer
  2. CAPECITABINE [Concomitant]
     Active Substance: CAPECITABINE
     Indication: Bladder cancer
     Dosage: 2 DOSAGE FORM, BID

REACTIONS (1)
  - Acute kidney injury [Recovering/Resolving]
